FAERS Safety Report 21051173 (Version 1)
Quarter: 2022Q3

REPORT INFORMATION
  Report Type: Spontaneous
  Country: US (occurrence: US)
  Receive Date: 20220707
  Receipt Date: 20220707
  Transmission Date: 20221027
  Serious: Yes (Other)
  Sender: FDA-Public Use
  Company Number: US-SA-SAC20220704001164

PATIENT
  Age: 45 Year
  Sex: Female

DRUGS (1)
  1. ZANTAC [Suspect]
     Active Substance: RANITIDINE HYDROCHLORIDE
     Indication: Dyspepsia
     Dosage: UNK, QD
     Dates: start: 198101, end: 202004

REACTIONS (4)
  - Breast cancer female [Unknown]
  - Colorectal cancer [Unknown]
  - Lung neoplasm malignant [Unknown]
  - Throat cancer [Unknown]

NARRATIVE: CASE EVENT DATE: 19980101
